FAERS Safety Report 23432855 (Version 1)
Quarter: 2024Q1

REPORT INFORMATION
  Report Type: Spontaneous
  Country: US (occurrence: None)
  Receive Date: 20240123
  Receipt Date: 20240123
  Transmission Date: 20240410
  Serious: Yes (Life-Threatening)
  Sender: FDA-Public Use
  Company Number: None

PATIENT
  Age: 63 Year
  Sex: Male
  Weight: 116 kg

DRUGS (1)
  1. TIRZEPATIDE [Suspect]
     Active Substance: TIRZEPATIDE
     Dosage: 5 MG  MILLIGRAM (S) WEEKLY SUBCUTANEOUS
     Route: 058
     Dates: start: 20240108, end: 20240108

REACTIONS (6)
  - Pruritus [None]
  - Dyspnoea [None]
  - Palpitations [None]
  - Syncope [None]
  - Rash [None]
  - Nausea [None]

NARRATIVE: CASE EVENT DATE: 20240108
